FAERS Safety Report 19680541 (Version 2)
Quarter: 2021Q3

REPORT INFORMATION
  Report Type: Spontaneous
  Country: US (occurrence: US)
  Receive Date: 20210810
  Receipt Date: 20210824
  Transmission Date: 20211014
  Serious: No
  Sender: FDA-Public Use
  Company Number: US-LUPIN PHARMACEUTICALS INC.-2021-13748

PATIENT
  Age: 22 Year
  Sex: Female
  Weight: 45.35 kg

DRUGS (2)
  1. DROS,EE,LEVOMEFOLATE CA,LEVOMEFOLATE CA TABLETS 3/0.02/0.451/0.451 MG [Suspect]
     Active Substance: DROSPIRENONE\ETHINYL ESTRADIOL\LEVOMEFOLATE CALCIUM
     Indication: CONTRACEPTION
  2. DROS,EE,LEVOMEFOLATE CA,LEVOMEFOLATE CA TABLETS 3/0.02/0.451/0.451 MG [Suspect]
     Active Substance: DROSPIRENONE\ETHINYL ESTRADIOL\LEVOMEFOLATE CALCIUM
     Indication: ACNE
     Dosage: 1 DOSAGE FORM, QD
     Route: 048
     Dates: start: 20210704

REACTIONS (2)
  - Product dose omission issue [Unknown]
  - Vomiting [Recovered/Resolved]

NARRATIVE: CASE EVENT DATE: 20210704
